FAERS Safety Report 7993908-1 (Version None)
Quarter: 2011Q4

REPORT INFORMATION
  Report Type: 
  Country: None (occurrence: None)
  Receive Date: 20111215
  Receipt Date: 20111202
  Transmission Date: 20120403
  Serious: Yes (Hospitalization)
  Sender: FDA-Public Use
  Company Number: 1000023227

PATIENT
  Age: 61 Year
  Sex: Female

DRUGS (5)
  1. ALBUTEROL (SALBUTAMOL) (SALBUTAMOL) [Concomitant]
  2. ROFLUMILAST (ROFLUMILAST, ROFLUMILAST) (500 MICROGRAM, TABLETS) [Suspect]
     Indication: CHRONIC OBSTRUCTIVE PULMONARY DISEASE
     Dosage: 500 MCG (500 MCG,1 IN 1 D),ORAL
     Route: 048
     Dates: start: 20110623
  3. SPIRIVA (TIOTROPIUM) (TIOTROPIUM) [Concomitant]
  4. ROFLUMILAST (ROFLUMILAST, ROFLUMILAST) (500 MICROGRAM, TABLETS) [Suspect]
     Indication: CHRONIC OBSTRUCTIVE PULMONARY DISEASE
     Dosage: 500 MCG (500 MCG,1 IN 1),ORAL
     Route: 048
     Dates: start: 20110701, end: 20110701
  5. SYMBICORT (BUDESONIDE, FORMOTEROL FUMARATE) (BUDESONIDE, FORMOTEROL FU [Concomitant]

REACTIONS (3)
  - ANXIETY [None]
  - AGITATION [None]
  - PANIC ATTACK [None]
